FAERS Safety Report 8011986-0 (Version None)
Quarter: 2011Q4

REPORT INFORMATION
  Report Type: 
  Country: None (occurrence: None)
  Receive Date: 20111228
  Receipt Date: 20111221
  Transmission Date: 20120403
  Serious: Yes (Death)
  Sender: FDA-Public Use
  Company Number: US-GLAXOSMITHKLINE-A0959261A

PATIENT
  Sex: Male

DRUGS (2)
  1. AFINITOR [Concomitant]
     Dates: start: 20111101
  2. VOTRIENT [Suspect]
     Indication: RENAL CANCER
     Dosage: 10MG PER DAY
     Route: 048
     Dates: start: 20110721, end: 20111101

REACTIONS (1)
  - DEATH [None]
